FAERS Safety Report 18969700 (Version 1)
Quarter: 2021Q1

REPORT INFORMATION
  Report Type: Report from Study
  Country: US (occurrence: US)
  Receive Date: 20210304
  Receipt Date: 20210304
  Transmission Date: 20210420
  Serious: Yes (Hospitalization, Other)
  Sender: FDA-Public Use
  Company Number: US-SHIRE-US202031729

PATIENT
  Age: 42 Year
  Sex: Female

DRUGS (1)
  1. HUMAN NORMAL IMMUNOGLOBULIN; LIQUID [Suspect]
     Active Substance: HUMAN IMMUNOGLOBULIN G
     Indication: PRIMARY IMMUNODEFICIENCY SYNDROME
     Dosage: 50 GRAM
     Route: 065

REACTIONS (6)
  - Malaise [Unknown]
  - Fibromyalgia [Unknown]
  - Fatigue [Unknown]
  - Pain [Unknown]
  - Pneumonia [Unknown]
  - Arthritis [Unknown]

NARRATIVE: CASE EVENT DATE: 20210222
